FAERS Safety Report 9451212 (Version 2)
Quarter: 2013Q3

REPORT INFORMATION
  Report Type: Spontaneous
  Country: JP (occurrence: JP)
  Receive Date: 20130809
  Receipt Date: 20130812
  Transmission Date: 20140515
  Serious: Yes (Hospitalization)
  Sender: FDA-Public Use
  Company Number: JP-TEVA-425065ISR

PATIENT
  Age: 21 Year
  Sex: Female
  Weight: 52 kg

DRUGS (2)
  1. MODIODAL TABLETS 100MG [Suspect]
     Indication: NARCOLEPSY
     Dosage: 200 MILLIGRAM DAILY;
     Route: 048
     Dates: start: 20090817, end: 20111107
  2. MODIODAL TABLETS 100MG [Suspect]
     Indication: SUICIDE ATTEMPT
     Dosage: 20 GRAM DAILY; 200 TABLETS
     Route: 048
     Dates: start: 20130625, end: 20130625

REACTIONS (5)
  - Palpitations [Recovered/Resolved]
  - Nausea [Recovered/Resolved]
  - Asthenia [Recovered/Resolved]
  - Suicide attempt [Unknown]
  - Intentional overdose [Unknown]
